FAERS Safety Report 5064690-5 (Version None)
Quarter: 2006Q3

REPORT INFORMATION
  Report Type: 
  Country: None (occurrence: None)
  Receive Date: 20060728
  Receipt Date: 20060522
  Transmission Date: 20061208
  Serious: Yes (Other)
  Sender: FDA-Public Use
  Company Number: NL-GLAXOSMITHKLINE-B0425491A

PATIENT
  Age: 45 Year
  Sex: Female

DRUGS (7)
  1. FLUTICASONE PROPIONATE [Suspect]
     Dosage: 50MCG PER DAY
     Route: 055
     Dates: start: 20001026, end: 20060118
  2. PULMICORT [Concomitant]
     Dosage: 200MCG TWICE PER DAY
     Route: 055
     Dates: start: 20010625
  3. VENTOLIN [Concomitant]
     Dosage: 100MCG FOUR TIMES PER DAY
     Route: 055
     Dates: start: 20010625
  4. FLUTICASONE PROPIONATE [Concomitant]
     Dosage: 50MCG PER DAY
     Route: 055
     Dates: start: 20060118, end: 20060121
  5. PROMETHAZINE [Concomitant]
     Dosage: 25MG PER DAY
     Dates: start: 20031006, end: 20060121
  6. SYMBICORT [Concomitant]
     Route: 055
     Dates: start: 20031106, end: 20060121
  7. DICLOFENAC SODIUM [Concomitant]
     Dosage: 100MG PER DAY

REACTIONS (2)
  - ANOSMIA [None]
  - PHARYNGITIS [None]
